APPROVED DRUG PRODUCT: LOTENSIN HCT
Active Ingredient: BENAZEPRIL HYDROCHLORIDE; HYDROCHLOROTHIAZIDE
Strength: 20MG;12.5MG
Dosage Form/Route: TABLET;ORAL
Application: N020033 | Product #004 | TE Code: AB
Applicant: VALIDUS PHARMACEUTICALS LLC
Approved: May 19, 1992 | RLD: Yes | RS: No | Type: RX